FAERS Safety Report 24868135 (Version 1)
Quarter: 2025Q1

REPORT INFORMATION
  Report Type: Spontaneous
  Country: US (occurrence: None)
  Receive Date: 20250117
  Receipt Date: 20250117
  Transmission Date: 20250408
  Serious: Yes (Disabling, Other)
  Sender: FDA-CTU
  Company Number: None

PATIENT
  Age: 46 Year
  Sex: Female
  Weight: 58.5 kg

DRUGS (3)
  1. FLUTICASONE PROPIONATE [Suspect]
     Active Substance: FLUTICASONE PROPIONATE
     Indication: Middle ear effusion
     Dosage: OTHER QUANTITY : 2 SPRAY(S)?FREQUENCY : TWICE A DAY?OTHER ROUTE : INHALED NOSTRIL?
     Route: 050
     Dates: start: 20240926, end: 20240927
  2. PROGESTERONE [Suspect]
     Active Substance: PROGESTERONE
  3. BUTALBITAL, ACETAMINOPHEN, AND CAFFEINE [Suspect]
     Active Substance: ACETAMINOPHEN\BUTALBITAL\CAFFEINE

REACTIONS (25)
  - Nausea [None]
  - Diplopia [None]
  - Migraine [None]
  - Facial pain [None]
  - Throat tightness [None]
  - Memory impairment [None]
  - Confusional state [None]
  - Asthenia [None]
  - Photophobia [None]
  - Panic attack [None]
  - Tremor [None]
  - Heart rate increased [None]
  - Insomnia [None]
  - Thinking abnormal [None]
  - Menstruation irregular [None]
  - Paraesthesia [None]
  - Paraesthesia [None]
  - Disturbance in attention [None]
  - Weight increased [None]
  - Vision blurred [None]
  - Memory impairment [None]
  - Mood swings [None]
  - Eye pain [None]
  - Sinus pain [None]
  - Speech disorder [None]

NARRATIVE: CASE EVENT DATE: 20240926
